FAERS Safety Report 11925856 (Version 2)
Quarter: 2016Q1

REPORT INFORMATION
  Report Type: Spontaneous
  Country: US (occurrence: US)
  Receive Date: 20160119
  Receipt Date: 20160119
  Transmission Date: 20160526
  Serious: Yes (Hospitalization, Other)
  Sender: FDA-Public Use
  Company Number: US-JNJFOC-20160102640

PATIENT
  Age: 64 Year
  Sex: Male
  Weight: 95.26 kg

DRUGS (2)
  1. BENADRYL EXTRA STRENGTH ITCH COOLING [Suspect]
     Active Substance: DIPHENHYDRAMINE HYDROCHLORIDE\ZINC ACETATE
     Indication: HYPERSENSITIVITY
     Dosage: QUARTER OF CONTAINER
     Route: 061
     Dates: start: 20160104, end: 20160104
  2. ALLERGY MEDICATION [Concomitant]
     Active Substance: DIPHENHYDRAMINE HYDROCHLORIDE
     Indication: HYPERSENSITIVITY
     Dosage: 1X12 MG
     Route: 065

REACTIONS (3)
  - Skin burning sensation [Recovering/Resolving]
  - Cerebrovascular accident [Not Recovered/Not Resolved]
  - Expired product administered [Not Recovered/Not Resolved]

NARRATIVE: CASE EVENT DATE: 20160104
